FAERS Safety Report 10242440 (Version 2)
Quarter: 2014Q3

REPORT INFORMATION
  Report Type: Spontaneous
  Country: CH (occurrence: CH)
  Receive Date: 20140617
  Receipt Date: 20140709
  Transmission Date: 20150326
  Serious: Yes (Hospitalization)
  Sender: FDA-Public Use
  Company Number: CH-BRISTOL-MYERS SQUIBB COMPANY-20979456

PATIENT
  Age: 58 Year
  Sex: Female

DRUGS (5)
  1. ELIQUIS [Suspect]
     Active Substance: APIXABAN
     Indication: ATRIAL FIBRILLATION
     Route: 048
     Dates: start: 20140225, end: 20140427
  2. ATORVASTATIN CALCIUM. [Suspect]
     Active Substance: ATORVASTATIN CALCIUM
     Indication: CEREBROVASCULAR ACCIDENT
     Route: 048
     Dates: start: 20140225, end: 20140430
  3. BELOC [Suspect]
     Active Substance: METOPROLOL TARTRATE
     Indication: ATRIAL FIBRILLATION
     Dosage: 175MG(75MG-25MG-75MG): APR2014-APR2014
     Route: 048
     Dates: end: 201404
  4. PARACETAMOL [Suspect]
     Active Substance: ACETAMINOPHEN
     Dates: end: 201404
  5. NEXIUM [Suspect]
     Active Substance: ESOMEPRAZOLE MAGNESIUM
     Dosage: REGIMEN II: 40MG/D: 03APR2014-APR2014, ?REGIMEN III: 40 MG TWICE PER DAY APR2014-CONTINUING
     Route: 048
     Dates: start: 20140225, end: 20140402

REACTIONS (1)
  - Hepatitis [Recovering/Resolving]

NARRATIVE: CASE EVENT DATE: 20140426
